FAERS Safety Report 4300550-2 (Version None)
Quarter: 2004Q1

REPORT INFORMATION
  Report Type: 
  Country: None (occurrence: None)
  Receive Date: 20040217
  Receipt Date: 20040203
  Transmission Date: 20041129
  Serious: Yes (Hospitalization, Other)
  Sender: FDA-Public Use
  Company Number: 2003124448

PATIENT
  Age: 71 Year
  Sex: Male
  Weight: 55 kg

DRUGS (14)
  1. LIPITOR [Suspect]
     Indication: HYPERLIPIDAEMIA
     Dosage: 5 MG (DAILY), ORAL
     Route: 048
     Dates: start: 20010516, end: 20031203
  2. BROMAZEPAM (BROMAZEPAM) [Suspect]
     Indication: NEUROSIS
     Dosage: 5 MG (DAILY), ORAL
     Route: 048
     Dates: start: 19991208, end: 20031203
  3. ALL OTHER THERAPEUTIC PRODUCTS [Suspect]
     Indication: NASOPHARYNGITIS
  4. ALL OTHER THERAPEUTIC PRODUCTS [Suspect]
     Indication: LIBIDO INCREASED
  5. SILDENAFIL CITRATE (SILDENAFIL CITRATE) [Concomitant]
  6. NIEFDIPINE (NIFEDIPINE) [Concomitant]
  7. CERNILTON (CERNITIN T60, CERNITIN GBX) [Concomitant]
  8. ALACEPRIL (ALACEPRIL) [Concomitant]
  9. CAMOSTAT (CAMOSTAT) [Concomitant]
  10. MARZULENE S (LEVOGLUTAMIDE, SODIUM GUALENATE) [Concomitant]
  11. BUFFERIN [Concomitant]
  12. IFENPRODIL TARTRATE (IFENPRODIL TARTRATE) [Concomitant]
  13. RANITIDINE HYDROCHLORIDE [Concomitant]
  14. MOSAPRIDE CITRATE (MOSAPRIDE CITRATE) [Concomitant]

REACTIONS (8)
  - ASTHENIA [None]
  - BLOOD CHLORIDE INCREASED [None]
  - BLOOD CREATINE PHOSPHOKINASE INCREASED [None]
  - MYOGLOBIN BLOOD INCREASED [None]
  - MYOGLOBIN URINE PRESENT [None]
  - MYOPATHY [None]
  - PAIN [None]
  - PERIARTHRITIS [None]
